FAERS Safety Report 8457351-3 (Version None)
Quarter: 2012Q2

REPORT INFORMATION
  Report Type: 
  Country: None (occurrence: None)
  Receive Date: 20120621
  Receipt Date: 20120611
  Transmission Date: 20120825
  Serious: Yes (Hospitalization, Other)
  Sender: FDA-Public Use
  Company Number: US-ELI_LILLY_AND_COMPANY-US201206003339

PATIENT
  Sex: Male

DRUGS (2)
  1. BYETTA [Suspect]
     Route: 058
  2. BYDUREON [Suspect]
     Dosage: 2 MG, WEEKLY (1/W)
     Route: 058
     Dates: start: 20120501

REACTIONS (3)
  - DIARRHOEA [None]
  - ILEUS PARALYTIC [None]
  - ABDOMINAL PAIN UPPER [None]
